FAERS Safety Report 8060481-1 (Version None)
Quarter: 2012Q1

REPORT INFORMATION
  Report Type: 
  Country: None (occurrence: None)
  Receive Date: 20120120
  Receipt Date: 20120113
  Transmission Date: 20120608
  Serious: Yes (Other)
  Sender: FDA-Public Use
  Company Number: US-US-EMD SERONO, INC.-7011165

PATIENT
  Sex: Male
  Weight: 100 kg

DRUGS (6)
  1. REBIF [Suspect]
     Indication: MULTIPLE SCLEROSIS
     Route: 058
     Dates: start: 20100412
  2. STEROIDS [Concomitant]
  3. GABAPENTIN [Concomitant]
     Indication: NEUROPATHY PERIPHERAL
     Dates: start: 20101203
  4. BACLOFEN [Concomitant]
     Indication: MUSCLE SPASMS
     Dates: start: 20101202
  5. 4-AMINOPYRIDINE [Concomitant]
     Indication: MUSCULAR WEAKNESS
     Route: 048
     Dates: start: 20100505
  6. TRAMADOL HCL [Concomitant]
     Indication: PAIN
     Dates: start: 20101203

REACTIONS (2)
  - OPTIC NEURITIS [None]
  - HYPOAESTHESIA [None]
